FAERS Safety Report 8787616 (Version 1)
Quarter: 2012Q4

REPORT INFORMATION
  Report Type: 
  Country: US (occurrence: US)
  Receive Date: 20120914
  Receipt Date: 20120914
  Transmission Date: 20130627
  Serious: Yes (Death, Other)
  Sender: FDA-Public Use
  Company Number: PHHY2012US079803

PATIENT
  Age: 53 Year
  Sex: Female

DRUGS (1)
  1. NAFCILLIN [Suspect]
     Dosage: 12 g/day

REACTIONS (8)
  - Hepatotoxicity [Fatal]
  - Jaundice cholestatic [Fatal]
  - Hepatic infarction [Fatal]
  - Respiratory arrest [Unknown]
  - Haemoglobin decreased [Unknown]
  - Disorientation [Unknown]
  - Blood urine present [Unknown]
  - Abdominal pain [Unknown]
